FAERS Safety Report 7422538-5 (Version None)
Quarter: 2011Q2

REPORT INFORMATION
  Report Type: 
  Country: None (occurrence: None)
  Receive Date: 20110419
  Receipt Date: 20110411
  Transmission Date: 20111010
  Serious: No
  Sender: FDA-Public Use
  Company Number: US-BIOGENIDEC-2011BI013781

PATIENT
  Age: 37 Year
  Sex: Female

DRUGS (2)
  1. AVONEX [Suspect]
     Indication: MULTIPLE SCLEROSIS
     Route: 030
     Dates: start: 20110411
  2. NAPROXEN [Concomitant]
     Indication: PREMEDICATION

REACTIONS (3)
  - ARTHRALGIA [None]
  - PALPITATIONS [None]
  - INFLUENZA LIKE ILLNESS [None]
